FAERS Safety Report 7885295-4 (Version None)
Quarter: 2011Q4

REPORT INFORMATION
  Report Type: 
  Country: None (occurrence: None)
  Receive Date: 20111102
  Receipt Date: 20111018
  Transmission Date: 20120403
  Serious: Yes (Disabling, Other)
  Sender: FDA-Public Use
  Company Number: GB-WATSON-2011-16977

PATIENT
  Age: 54 Year
  Sex: Female

DRUGS (4)
  1. PROCYCLIDINE HYDROCHLORIDE 2MG TAB [Concomitant]
     Indication: PRODUCT USED FOR UNKNOWN INDICATION
     Dosage: 5 MG, TID
     Route: 065
  2. RAMIPRIL [Suspect]
     Dosage: 2.5 MG, DAILY
     Route: 048
     Dates: start: 20101211, end: 20110301
  3. MODECATE [Concomitant]
     Indication: PRODUCT USED FOR UNKNOWN INDICATION
     Dosage: 25 MG, QID
     Route: 065
  4. RAMIPRIL [Suspect]
     Indication: HYPERTENSION
     Dosage: 5 MG, DAILY
     Route: 065
     Dates: start: 20110301, end: 20110425

REACTIONS (3)
  - PAIN IN EXTREMITY [None]
  - HYPOAESTHESIA [None]
  - PARAESTHESIA [None]
